FAERS Safety Report 12981746 (Version 1)
Quarter: 2016Q4

REPORT INFORMATION
  Report Type: Report from Study
  Country: MX (occurrence: MX)
  Receive Date: 20161129
  Receipt Date: 20161129
  Transmission Date: 20170207
  Serious: Yes (Death, Other)
  Sender: FDA-Public Use
  Company Number: MX-ACTELION-A-US2016-140935

PATIENT
  Age: 18 Year
  Sex: Female
  Weight: 57 kg

DRUGS (8)
  1. VENTAVIS [Suspect]
     Active Substance: ILOPROST
     Indication: PULMONARY HYPERTENSION
     Dosage: 1 DF, BID
     Route: 055
     Dates: start: 20160810
  2. TADALAFIL [Concomitant]
     Active Substance: TADALAFIL
     Dosage: UNK
  3. BOSENTAN. [Concomitant]
     Active Substance: BOSENTAN
     Dosage: UNK
     Dates: start: 2008
  4. BOSENTAN. [Concomitant]
     Active Substance: BOSENTAN
     Dosage: UNK
     Dates: start: 2008
  5. ACENOCUMAROL [Concomitant]
     Active Substance: ACENOCOUMAROL
  6. FUROSEMIDE. [Concomitant]
     Active Substance: FUROSEMIDE
     Dosage: UNK
     Dates: start: 2008
  7. LEVOTHYROXINE. [Concomitant]
     Active Substance: LEVOTHYROXINE
     Dosage: UNK
  8. FERROUS SULFATE. [Concomitant]
     Active Substance: FERROUS SULFATE
     Dosage: UNK

REACTIONS (22)
  - Blood pressure decreased [Recovered/Resolved]
  - Muscle tightness [Recovered/Resolved]
  - Vomiting [Not Recovered/Not Resolved]
  - Haemoptysis [Not Recovered/Not Resolved]
  - Dyspnoea [Not Recovered/Not Resolved]
  - Pulmonary pain [Unknown]
  - Fatigue [Unknown]
  - Tricuspid valve incompetence [Fatal]
  - Syncope [Not Recovered/Not Resolved]
  - Atrial septal defect [Fatal]
  - Productive cough [Not Recovered/Not Resolved]
  - Product use issue [Unknown]
  - Headache [Not Recovered/Not Resolved]
  - Syncope [Unknown]
  - Myocardial infarction [Fatal]
  - Pulmonary hypertension [Fatal]
  - Headache [Recovered/Resolved]
  - Hyperthyroidism [Fatal]
  - Nasopharyngitis [Not Recovered/Not Resolved]
  - Cardiomegaly [Fatal]
  - Nausea [Recovered/Resolved]
  - Hypotension [Unknown]

NARRATIVE: CASE EVENT DATE: 20160810
